FAERS Safety Report 9409346 (Version 1)
Quarter: 2013Q3

REPORT INFORMATION
  Report Type: Spontaneous
  Country: US (occurrence: US)
  Receive Date: 20130719
  Receipt Date: 20130719
  Transmission Date: 20140515
  Serious: No
  Sender: FDA-Public Use
  Company Number: US-PFIZER INC-2013210998

PATIENT
  Age: 48 Year
  Sex: Female
  Weight: 81.63 kg

DRUGS (3)
  1. NEURONTIN [Suspect]
     Indication: BACK PAIN
     Dosage: 800 MG, 3X/DAY
     Dates: start: 2010
  2. CYMBALTA [Suspect]
     Indication: FIBROMYALGIA
     Dosage: 90 MG, 1X/DAY
     Dates: start: 2013
  3. ELAVIL [Concomitant]
     Indication: DEPRESSION
     Dosage: 25 MG, AS NEEDED

REACTIONS (2)
  - Fibromyalgia [Not Recovered/Not Resolved]
  - Drug ineffective [Unknown]
